FAERS Safety Report 5139876-1 (Version None)
Quarter: 2006Q4

REPORT INFORMATION
  Report Type: 
  Country: None (occurrence: None)
  Receive Date: 20061026
  Receipt Date: 20061026
  Transmission Date: 20070319
  Serious: Yes (Other)
  Sender: FDA-Public Use
  Company Number: None

PATIENT
  Age: 44 Year
  Sex: Female

DRUGS (1)
  1. PAXIL [Suspect]
     Indication: DEPRESSION
     Dosage: # 30  1/DAY  40 MG

REACTIONS (3)
  - ANXIETY [None]
  - CHOKING SENSATION [None]
  - PHARMACEUTICAL PRODUCT COMPLAINT [None]
